FAERS Safety Report 8225467-2 (Version None)
Quarter: 2012Q1

REPORT INFORMATION
  Report Type: 
  Country: None (occurrence: None)
  Receive Date: 20120321
  Receipt Date: 20120308
  Transmission Date: 20120608
  Serious: No
  Sender: FDA-Public Use
  Company Number: US-BAYER-2012-026756

PATIENT
  Sex: Female

DRUGS (2)
  1. VITAMIN TAB [Concomitant]
  2. ALEVE (CAPLET) [Suspect]
     Indication: DYSMENORRHOEA
     Dosage: 2 DF (TABLETS) EVERY 3 OR 4 HOURS TO RELIEVE CRAMPS
     Route: 048

REACTIONS (2)
  - PLATELET COUNT DECREASED [None]
  - CONTUSION [None]
